FAERS Safety Report 20491801 (Version 8)
Quarter: 2023Q2

REPORT INFORMATION
  Report Type: Spontaneous
  Country: FR (occurrence: None)
  Receive Date: 20220218
  Receipt Date: 20230525
  Transmission Date: 20230722
  Serious: Yes (Other)
  Sender: FDA-Public Use
  Company Number: FR-Merck Healthcare KGaA-9299800

PATIENT
  Age: 41 Year
  Sex: Female
  Weight: 59 kg

DRUGS (2)
  1. LEVOTHYROXINE [Suspect]
     Active Substance: LEVOTHYROXINE
     Indication: Post procedural hypothyroidism
     Dosage: NEW FORMULATION?START DATE: 06 MAY 2017
     Dates: end: 201804
  2. DEXAMETHASONE [Concomitant]
     Active Substance: DEXAMETHASONE
     Indication: Product used for unknown indication

REACTIONS (36)
  - Gastrointestinal disorder [Unknown]
  - Flatulence [Unknown]
  - Abdominal pain upper [Recovered/Resolved]
  - Feeding disorder [Unknown]
  - Exophthalmos [Unknown]
  - Amyotrophy [Unknown]
  - Mental disorder [Unknown]
  - Pain [Unknown]
  - Alopecia [Unknown]
  - Depression [Unknown]
  - Arthralgia [Recovered/Resolved]
  - Affective disorder [Unknown]
  - Fatigue [Unknown]
  - Muscle atrophy [Unknown]
  - Somnolence [Unknown]
  - Amnesia [Unknown]
  - Asthenia [Unknown]
  - Impaired work ability [Unknown]
  - Photophobia [Unknown]
  - Crying [Unknown]
  - Joint ankylosis [Unknown]
  - Condition aggravated [Unknown]
  - Gait disturbance [Unknown]
  - Myalgia [Unknown]
  - Movement disorder [Unknown]
  - Fall [Unknown]
  - Swelling [Unknown]
  - Dry skin [Unknown]
  - Impaired driving ability [Unknown]
  - Loss of personal independence in daily activities [Unknown]
  - Exercise tolerance decreased [Unknown]
  - Heart rate decreased [Unknown]
  - Social avoidant behaviour [Unknown]
  - Discomfort [Unknown]
  - Insomnia [Unknown]
  - Muscle spasms [Unknown]

NARRATIVE: CASE EVENT DATE: 20170101
